FAERS Safety Report 14220764 (Version 9)
Quarter: 2020Q2

REPORT INFORMATION
  Report Type: Spontaneous
  Country: JP (occurrence: JP)
  Receive Date: 20171124
  Receipt Date: 20200621
  Transmission Date: 20200713
  Serious: Yes (Hospitalization, Other)
  Sender: FDA-Public Use
  Company Number: JP-BRISTOL-MYERS SQUIBB COMPANY-BMS-2017-106395

PATIENT
  Age: 78 Year
  Sex: Male
  Weight: 47 kg

DRUGS (5)
  1. POLAPREZINC [Concomitant]
     Active Substance: POLAPREZINC
     Indication: GASTRIC ULCER
     Dosage: 2 DF, QD
     Route: 048
     Dates: start: 201702
  2. BAKTAR [Concomitant]
     Active Substance: SULFAMETHOXAZOLE\TRIMETHOPRIM
     Indication: PROPHYLAXIS
     Dosage: 1 DF, QD
     Route: 048
     Dates: start: 201701
  3. OPDIVO [Suspect]
     Active Substance: NIVOLUMAB
     Indication: GASTRIC CANCER
     Dosage: 3 MG/KG (140 MG)
     Route: 041
     Dates: start: 20171005
  4. DECADRON [Concomitant]
     Active Substance: DEXAMETHASONE
     Indication: GENERAL PHYSICAL HEALTH DETERIORATION
     Dosage: 3 DF, BID
     Route: 048
     Dates: start: 201701
  5. URSODEOXYCHOLIC ACID [Concomitant]
     Active Substance: URSODIOL
     Indication: HEPATIC FUNCTION ABNORMAL
     Dosage: 6 DF, TID
     Route: 048

REACTIONS (3)
  - Intentional product use issue [Unknown]
  - Infusion related reaction [Recovered/Resolved]
  - Febrile neutropenia [Recovered/Resolved]

NARRATIVE: CASE EVENT DATE: 20171006
